FAERS Safety Report 21187632 (Version 3)
Quarter: 2022Q3

REPORT INFORMATION
  Report Type: Report from Study
  Country: US (occurrence: US)
  Receive Date: 20220808
  Receipt Date: 20220818
  Transmission Date: 20221026
  Serious: Yes (Other)
  Sender: FDA-Public Use
  Company Number: US-ABBVIE-22K-163-4496016-00

PATIENT
  Sex: Female

DRUGS (5)
  1. RINVOQ [Suspect]
     Active Substance: UPADACITINIB
     Indication: Rheumatoid arthritis
     Route: 048
     Dates: end: 202204
  2. RINVOQ [Suspect]
     Active Substance: UPADACITINIB
     Route: 048
     Dates: start: 20220809
  3. JANSSEN COVID-19 VACCINE [Concomitant]
     Active Substance: AD26.COV2.S
     Indication: COVID-19 immunisation
     Dosage: JOHNSON AND JOHNSON, FIRST DOSE
     Route: 030
     Dates: start: 20210401, end: 20210401
  4. JANSSEN COVID-19 VACCINE [Concomitant]
     Active Substance: AD26.COV2.S
     Dosage: JOHNSON AND JOHNSON, SECOND DOSE
     Route: 030
     Dates: start: 20210430, end: 20210430
  5. MODERNA COVID-19 VACCINE [Concomitant]
     Active Substance: ELASOMERAN
     Indication: COVID-19 immunisation
     Dosage: MODERNA BOOSTER DOSE
     Route: 030
     Dates: start: 20220401, end: 20220401

REACTIONS (6)
  - Spinal stenosis [Recovering/Resolving]
  - COVID-19 [Unknown]
  - Swelling [Unknown]
  - Pain in extremity [Unknown]
  - Arthralgia [Unknown]
  - Bone pain [Unknown]

NARRATIVE: CASE EVENT DATE: 20210101
